FAERS Safety Report 21735108 (Version 2)
Quarter: 2023Q1

REPORT INFORMATION
  Report Type: Report from Study
  Country: CA (occurrence: CA)
  Receive Date: 20221215
  Receipt Date: 20230112
  Transmission Date: 20230418
  Serious: Yes (Hospitalization)
  Sender: FDA-Public Use
  Company Number: CA-BoehringerIngelheim-2022-BI-198413

PATIENT
  Age: 63 Year
  Sex: Female

DRUGS (2)
  1. OFEV [Suspect]
     Active Substance: NINTEDANIB
     Indication: Idiopathic pulmonary fibrosis
     Dates: start: 20220909
  2. OFEV [Suspect]
     Active Substance: NINTEDANIB
     Dates: start: 20221220

REACTIONS (5)
  - Dehydration [Recovering/Resolving]
  - Diarrhoea [Recovering/Resolving]
  - Vertigo [Not Recovered/Not Resolved]
  - Decreased appetite [Recovering/Resolving]
  - Weight decreased [Not Recovered/Not Resolved]
